FAERS Safety Report 4922979-1 (Version None)
Quarter: 2006Q1

REPORT INFORMATION
  Report Type: 
  Country: None (occurrence: None)
  Receive Date: 20060224
  Receipt Date: 20050718
  Transmission Date: 20060701
  Serious: Yes (Hospitalization)
  Sender: FDA-Public Use
  Company Number: US-MERCK-0507USA02903

PATIENT
  Age: 65 Year
  Sex: Female
  Weight: 70 kg

DRUGS (11)
  1. VIOXX [Suspect]
     Indication: ARTHRITIS
     Route: 048
     Dates: start: 20020214, end: 20030905
  2. VIOXX [Suspect]
     Route: 048
     Dates: start: 20020214, end: 20040729
  3. PLAVIX [Concomitant]
     Route: 065
  4. NITROGLYCERIN [Concomitant]
     Route: 065
  5. ASPIRIN [Concomitant]
     Route: 065
  6. ZOCOR [Suspect]
     Route: 065
  7. IMDUR [Concomitant]
     Route: 048
  8. PLETAL [Concomitant]
     Route: 065
  9. PROPRANOLOL HYDROCHLORIDE [Concomitant]
     Route: 065
     Dates: end: 20020201
  10. ELAVIL [Concomitant]
     Route: 048
  11. PREMARIN [Concomitant]
     Route: 048

REACTIONS (18)
  - AORTIC VALVE INCOMPETENCE [None]
  - ARTERIAL OCCLUSIVE DISEASE [None]
  - CARDIAC FAILURE CONGESTIVE [None]
  - CEREBROVASCULAR ACCIDENT [None]
  - CERUMEN IMPACTION [None]
  - CHEST DISCOMFORT [None]
  - CHEST PAIN [None]
  - CHRONIC OBSTRUCTIVE PULMONARY DISEASE [None]
  - CONFUSIONAL STATE [None]
  - DYSPNOEA [None]
  - HYPERLIPIDAEMIA [None]
  - INTERMITTENT CLAUDICATION [None]
  - MYALGIA [None]
  - MYOCARDIAL INFARCTION [None]
  - NERVOUSNESS [None]
  - NON-CARDIAC CHEST PAIN [None]
  - PAIN [None]
  - UPPER RESPIRATORY TRACT INFECTION [None]
